FAERS Safety Report 18899239 (Version 1)
Quarter: 2021Q1

REPORT INFORMATION
  Report Type: Report from Study
  Country: US (occurrence: US)
  Receive Date: 20210216
  Receipt Date: 20210216
  Transmission Date: 20210420
  Serious: Yes (Hospitalization, Other)
  Sender: FDA-Public Use
  Company Number: US-ASTRAZENECA-2021A037788

PATIENT
  Sex: Female

DRUGS (15)
  1. ACETAMINOPHEN. [Concomitant]
     Active Substance: ACETAMINOPHEN
  2. PANTOPRAZOLE [Concomitant]
     Active Substance: PANTOPRAZOLE
  3. TAGRISSO [Suspect]
     Active Substance: OSIMERTINIB
     Indication: BRAIN NEOPLASM MALIGNANT
     Route: 048
  4. CALCIUM [Concomitant]
     Active Substance: CALCIUM
  5. TRULICITY [Concomitant]
     Active Substance: DULAGLUTIDE
  6. VITAMIN B12 [Concomitant]
     Active Substance: CYANOCOBALAMIN
  7. LATANOPROST. [Concomitant]
     Active Substance: LATANOPROST
  8. ASPIRIN. [Concomitant]
     Active Substance: ASPIRIN
  9. METOPROLOL. [Suspect]
     Active Substance: METOPROLOL
     Route: 065
  10. VITAMIN B6 [Concomitant]
     Active Substance: PYRIDOXINE HYDROCHLORIDE
  11. VITAMIN D [Concomitant]
     Active Substance: VITAMIN D NOS
  12. METOPROLOL. [Concomitant]
     Active Substance: METOPROLOL
  13. STOOL SOFTENER (DOCUSATE) [Concomitant]
     Active Substance: DOCUSATE
  14. MAGNESIUM [Concomitant]
     Active Substance: MAGNESIUM
  15. SYNTHROID [Concomitant]
     Active Substance: LEVOTHYROXINE SODIUM

REACTIONS (5)
  - Pleural effusion [Not Recovered/Not Resolved]
  - Asthenia [Unknown]
  - Brain neoplasm [Not Recovered/Not Resolved]
  - Thrombosis [Not Recovered/Not Resolved]
  - Fall [Unknown]
